FAERS Safety Report 15164021 (Version 1)
Quarter: 2018Q4

REPORT INFORMATION
  Report Type: Spontaneous
  Country: US (occurrence: US)
  Receive Date: 20180719
  Receipt Date: 20180719
  Transmission Date: 20190204
  Serious: Yes (Other)
  Sender: FDA-Public Use
  Company Number: US-WEST-WARD PHARMACEUTICALS CORP.-US-H14001-18-03596

PATIENT
  Age: 2 Year
  Sex: Female
  Weight: 12.26 kg

DRUGS (3)
  1. FEXOFENADINE [Concomitant]
     Active Substance: FEXOFENADINE\FEXOFENADINE HYDROCHLORIDE
     Indication: ALLERGY PROPHYLAXIS
     Route: 065
  2. AMOXICILLIN FOR ORAL SUSPENSION 400MG/5ML [Suspect]
     Active Substance: AMOXICILLIN
     Indication: PNEUMONIA
     Dosage: 6.5 MILLILITRE
     Route: 048
     Dates: start: 20180205, end: 20180207
  3. AMOXICILLIN FOR ORAL SUSPENSION 400MG/5ML [Suspect]
     Active Substance: AMOXICILLIN
     Indication: COUGH

REACTIONS (1)
  - Anaphylactic reaction [Recovered/Resolved]

NARRATIVE: CASE EVENT DATE: 20180207
